FAERS Safety Report 8985891 (Version 3)
Quarter: 2014Q1

REPORT INFORMATION
  Report Type: Spontaneous
  Country: US (occurrence: US)
  Receive Date: 20121226
  Receipt Date: 20140328
  Transmission Date: 20141002
  Serious: Yes (Other)
  Sender: FDA-Public Use
  Company Number: US-PFIZER INC-2012325145

PATIENT
  Age: 82 Year
  Sex: Male
  Weight: 86 kg

DRUGS (9)
  1. LYRICA [Suspect]
     Indication: NEUROPATHY PERIPHERAL
     Dosage: 25 MG, 2X/DAY
     Dates: end: 2011
  2. LYRICA [Suspect]
     Indication: DIABETIC NEUROPATHY
     Dosage: 25 MG, 2X/DAY
     Dates: start: 20121218
  3. LYRICA [Suspect]
     Indication: NEUROPATHY PERIPHERAL
     Dosage: 50 MG, ALTERNATE DAY (QOD)
  4. LYRICA [Suspect]
     Dosage: 25 MG, 1X/DAY
     Route: 048
     Dates: start: 20140201
  5. GLUCOTROL XL [Concomitant]
     Indication: DIABETES MELLITUS
     Dosage: 2.5 MG, DAILY
  6. TENORMIN [Concomitant]
     Indication: HYPERTENSION
     Dosage: 25 MG, 2X/DAY
  7. ALTACE [Concomitant]
     Dosage: 10 MG, DAILY
  8. ALTACE [Concomitant]
     Dosage: 5 MG, UNK
  9. LASIX [Concomitant]
     Dosage: 20 MG, DAILY

REACTIONS (3)
  - Cataract [Unknown]
  - Vision blurred [Unknown]
  - Pain in extremity [Unknown]
